FAERS Safety Report 8761296 (Version 3)
Quarter: 2013Q2

REPORT INFORMATION
  Report Type: Report from Study
  Country: HU (occurrence: HU)
  Receive Date: 20120830
  Receipt Date: 20130617
  Transmission Date: 20140414
  Serious: Yes (Hospitalization)
  Sender: FDA-Public Use
  Company Number: HU-WATSON-2012-14728

PATIENT
  Age: 69 Year
  Sex: Male
  Weight: 83 kg

DRUGS (7)
  1. RAPAFLO (WATSON LABORATORIES) [Suspect]
     Indication: BENIGN PROSTATIC HYPERPLASIA
     Dosage: 8 MG, DAILY
     Route: 048
     Dates: start: 20120227, end: 20120812
  2. NEBILET [Concomitant]
     Indication: HYPERTENSION
     Dosage: 2.5 MG, DAILY
     Route: 065
     Dates: start: 20110728
  3. COVERCARD [Concomitant]
     Indication: HYPERTENSION
     Dosage: 5.19 MG DAILY
     Route: 065
     Dates: start: 20110729
  4. ASTRIX [Concomitant]
     Indication: MYOCARDIAL ISCHAEMIA
     Dosage: 100 MG, DAILY
     Route: 065
     Dates: start: 20120728
  5. NOOTROPIL [Concomitant]
     Indication: TRANSIENT ISCHAEMIC ATTACK
     Dosage: 2400 MG, DAILY
     Route: 065
     Dates: start: 2002
  6. FLUVASTATIN [Concomitant]
     Indication: HYPERCHOLESTEROLAEMIA
     Dosage: 80 MG, DAILY
     Route: 065
     Dates: start: 201101
  7. FURON                              /00032601/ [Concomitant]
     Indication: OEDEMA PERIPHERAL
     Dosage: 40 MG, DAILY
     Route: 065
     Dates: start: 20120613, end: 20120623

REACTIONS (2)
  - Atrial fibrillation [Recovered/Resolved]
  - Atrial flutter [Recovered/Resolved]
